FAERS Safety Report 4531440-8 (Version None)
Quarter: 2004Q4

REPORT INFORMATION
  Report Type: 
  Country: None (occurrence: None)
  Receive Date: 20041216
  Receipt Date: 20041201
  Transmission Date: 20050328
  Serious: Yes (Death)
  Sender: FDA-Public Use
  Company Number: 21-732-2004-M0001

PATIENT
  Age: 78 Year
  Sex: Male
  Weight: 72.5755 kg

DRUGS (4)
  1. VANTAS [Suspect]
     Indication: PROSTATE CANCER
     Dosage: 50 MG, ONCE PER YEAR, IMPLANT 057
     Dates: start: 20041118, end: 20041128
  2. GLUCOTROL [Concomitant]
  3. GLUCOPHAGE [Concomitant]
  4. CASODEX [Concomitant]

REACTIONS (5)
  - DYSURIA [None]
  - HEPATIC CIRRHOSIS [None]
  - METASTASES TO BONE [None]
  - OESOPHAGEAL VARICES HAEMORRHAGE [None]
  - REFUSAL OF TREATMENT BY PATIENT [None]
